FAERS Safety Report 8295334-7 (Version None)
Quarter: 2012Q2

REPORT INFORMATION
  Report Type: 
  Country: None (occurrence: None)
  Receive Date: 20120418
  Receipt Date: 20120329
  Transmission Date: 20120825
  Serious: Yes (Other)
  Sender: FDA-Public Use
  Company Number: JP-BAXTER-2011BH032660

PATIENT
  Sex: Male
  Weight: 10 kg

DRUGS (2)
  1. ADVATE [Suspect]
     Route: 042
     Dates: start: 20070920, end: 20070930
  2. ADVATE [Suspect]
     Route: 042
     Dates: start: 20071001, end: 20071210

REACTIONS (1)
  - FACTOR VIII INHIBITION [None]
